FAERS Safety Report 22773248 (Version 3)
Quarter: 2023Q4

REPORT INFORMATION
  Report Type: Report from Study
  Country: CA (occurrence: CA)
  Receive Date: 20230801
  Receipt Date: 20231121
  Transmission Date: 20240110
  Serious: Yes (Other)
  Sender: FDA-Public Use
  Company Number: CA-JNJFOC-20230765106

PATIENT
  Age: 31 Year
  Sex: Female
  Weight: 100 kg

DRUGS (3)
  1. REMICADE [Suspect]
     Active Substance: INFLIXIMAB
     Indication: Crohn^s disease
     Dosage: EXPIRY DATE: 28-FEB-2026
     Route: 041
     Dates: start: 20120217, end: 20231102
  2. REMICADE [Suspect]
     Active Substance: INFLIXIMAB
     Indication: Uveitis
  3. KETAMINE [Concomitant]
     Active Substance: KETAMINE
     Indication: Depression
     Route: 065

REACTIONS (5)
  - Systemic lupus erythematosus [Unknown]
  - Ocular hyperaemia [Not Recovered/Not Resolved]
  - Eye pain [Not Recovered/Not Resolved]
  - Psoriasis [Recovering/Resolving]
  - Off label use [Unknown]

NARRATIVE: CASE EVENT DATE: 20120217
